FAERS Safety Report 6748196-0 (Version None)
Quarter: 2010Q2

REPORT INFORMATION
  Report Type: 
  Country: None (occurrence: None)
  Receive Date: 20100531
  Receipt Date: 20100517
  Transmission Date: 20101027
  Serious: No
  Sender: FDA-Public Use
  Company Number: ES-ELI_LILLY_AND_COMPANY-ES201005004388

PATIENT
  Sex: Male

DRUGS (1)
  1. CIALIS [Suspect]
     Dosage: 20 MG, 2 TABLETS
     Route: 065

REACTIONS (3)
  - EYE PAIN [None]
  - INTENTIONAL DRUG MISUSE [None]
  - INTRAOCULAR PRESSURE INCREASED [None]
